FAERS Safety Report 8414942-3 (Version None)
Quarter: 2012Q2

REPORT INFORMATION
  Report Type: 
  Country: None (occurrence: None)
  Receive Date: 20120601
  Receipt Date: 20120601
  Transmission Date: 20120825
  Serious: Yes (Other)
  Sender: FDA-Public Use
  Company Number: None

PATIENT
  Sex: Female
  Weight: 65.7716 kg

DRUGS (1)
  1. IMPLANON [Suspect]
     Indication: CONTRACEPTION
     Dosage: 1 DOSE ONEC EVERY 3 YEARS ID
     Route: 023
     Dates: start: 20100708, end: 20120601

REACTIONS (18)
  - ANXIETY [None]
  - FATIGUE [None]
  - HYPERSENSITIVITY [None]
  - TREMOR [None]
  - IMPLANT SITE PRURITUS [None]
  - ALOPECIA [None]
  - NAUSEA [None]
  - OEDEMA PERIPHERAL [None]
  - MENSTRUATION IRREGULAR [None]
  - BREAST TENDERNESS [None]
  - NERVOUSNESS [None]
  - PAIN IN EXTREMITY [None]
  - DYSPHONIA [None]
  - BLOOD PRESSURE INCREASED [None]
  - DEPRESSION [None]
  - PHARYNGITIS [None]
  - THROAT TIGHTNESS [None]
  - PANIC ATTACK [None]
